FAERS Safety Report 9419270 (Version 1)
Quarter: 2013Q3

REPORT INFORMATION
  Report Type: Spontaneous
  Country: US (occurrence: US)
  Receive Date: 20130725
  Receipt Date: 20130725
  Transmission Date: 20140515
  Serious: No
  Sender: FDA-Public Use
  Company Number: US-GLAXOSMITHKLINE-A0995443A

PATIENT
  Age: 62 Year
  Sex: Male

DRUGS (10)
  1. LAMICTAL [Suspect]
     Indication: ATTENTION DEFICIT/HYPERACTIVITY DISORDER
     Dosage: 100TAB PER DAY
     Route: 048
     Dates: start: 20110330
  2. ATENOLOL [Concomitant]
  3. BENAZEPRIL [Concomitant]
  4. NORVASC [Concomitant]
  5. NEXIUM [Concomitant]
  6. ASPIRIN [Concomitant]
  7. VYVANSE [Concomitant]
  8. VITAMIN D [Concomitant]
  9. HYDROCHLOROTHIAZIDE [Concomitant]
  10. LANTUS [Concomitant]

REACTIONS (4)
  - Nausea [Unknown]
  - Dizziness [Unknown]
  - Amnesia [Unknown]
  - Feeling abnormal [Unknown]
